FAERS Safety Report 25199385 (Version 2)
Quarter: 2025Q2

REPORT INFORMATION
  Report Type: Spontaneous
  Country: JP (occurrence: JP)
  Receive Date: 20250415
  Receipt Date: 20250522
  Transmission Date: 20250716
  Serious: Yes (Hospitalization, Other)
  Sender: MERCK SHARP & DOHME LLC
  Company Number: JP-009507513-2275697

PATIENT
  Age: 87 Year
  Sex: Female

DRUGS (3)
  1. KEYTRUDA [Suspect]
     Active Substance: PEMBROLIZUMAB
     Indication: Uterine cancer
     Route: 041
     Dates: start: 20250204
  2. CARBOPLATIN [Suspect]
     Active Substance: CARBOPLATIN
     Dosage: AUC5 Q3W
     Route: 041
     Dates: start: 20241121, end: 20250307
  3. PACLITAXEL [Suspect]
     Active Substance: PACLITAXEL
     Dosage: 175MG/M2 ONCE EVERY 3 WEEKS (75% REDUCED DOSE).
     Route: 041
     Dates: start: 20241121, end: 20250307

REACTIONS (5)
  - Neutropenic colitis [Recovered/Resolved]
  - Drug ineffective [Unknown]
  - Renal infarct [Recovered/Resolved]
  - Malignant neoplasm progression [Recovered/Resolved]
  - Anaemia [Recovered/Resolved]

NARRATIVE: CASE EVENT DATE: 20250101
